FAERS Safety Report 18592921 (Version 1)
Quarter: 2020Q4

REPORT INFORMATION
  Report Type: Spontaneous
  Country: CN (occurrence: CN)
  Receive Date: 20201208
  Receipt Date: 20201208
  Transmission Date: 20210114
  Serious: Yes (Hospitalization, Other)
  Sender: FDA-Public Use
  Company Number: CN-SA-2020SA351945

PATIENT

DRUGS (2)
  1. HARNAL [Suspect]
     Active Substance: TAMSULOSIN HYDROCHLORIDE
     Indication: BENIGN PROSTATIC HYPERPLASIA
     Dosage: 0.2 MG, QD
     Route: 048
     Dates: start: 20201019, end: 20201021
  2. LEVOFLOXACIN. [Suspect]
     Active Substance: LEVOFLOXACIN
     Indication: INFECTION
     Dosage: 0.5 MG, QD
     Route: 048
     Dates: start: 20201019, end: 20201020

REACTIONS (18)
  - Coronary artery disease [Unknown]
  - Syncope [Recovered/Resolved]
  - Gait inability [Unknown]
  - Chronic obstructive pulmonary disease [Unknown]
  - Dizziness [Recovered/Resolved]
  - Vomiting [Recovered/Resolved]
  - Tremor [Recovered/Resolved]
  - Decreased appetite [Unknown]
  - Arteriosclerosis coronary artery [Unknown]
  - Atrial fibrillation [Unknown]
  - Cerebral atrophy [Unknown]
  - Nausea [Recovered/Resolved]
  - Anaphylactic reaction [Recovered/Resolved]
  - Dyspnoea exertional [Unknown]
  - Arrhythmia [Unknown]
  - Cardiac dysfunction [Unknown]
  - Chest discomfort [Unknown]
  - Emphysema [Unknown]

NARRATIVE: CASE EVENT DATE: 20201020
